FAERS Safety Report 19719394 (Version 1)
Quarter: 2021Q3

REPORT INFORMATION
  Report Type: Spontaneous
  Country: US (occurrence: US)
  Receive Date: 20210817
  Receipt Date: 20210817
  Transmission Date: 20211014
  Serious: Yes (Disabling)
  Sender: FDA-Public Use
  Company Number: None

PATIENT
  Age: 37 Year
  Sex: Male
  Weight: 102.06 kg

DRUGS (1)
  1. CHANTIX [Suspect]
     Active Substance: VARENICLINE TARTRATE
     Indication: SMOKING CESSATION THERAPY
     Dosage: ?          QUANTITY:1 MG MILLIGRAM(S);?
     Route: 048
     Dates: start: 20210624, end: 20210729

REACTIONS (10)
  - Recalled product administered [None]
  - Memory impairment [None]
  - Anxiety [None]
  - Product measured potency issue [None]
  - Product quality issue [None]
  - Feeling abnormal [None]
  - Lethargy [None]
  - Loss of consciousness [None]
  - Antisocial behaviour [None]
  - Disturbance in social behaviour [None]

NARRATIVE: CASE EVENT DATE: 20210624
